FAERS Safety Report 12212601 (Version 3)
Quarter: 2016Q2

REPORT INFORMATION
  Report Type: Report from Study
  Country: BR (occurrence: BR)
  Receive Date: 20160328
  Receipt Date: 20160426
  Transmission Date: 20160815
  Serious: Yes (Hospitalization, Other)
  Sender: FDA-Public Use
  Company Number: BR-ROCHE-1223250

PATIENT
  Age: 55 Year
  Sex: Female
  Weight: 63 kg

DRUGS (9)
  1. XOLAIR [Suspect]
     Active Substance: OMALIZUMAB
     Route: 058
     Dates: start: 20130327
  2. XOLAIR [Suspect]
     Active Substance: OMALIZUMAB
     Route: 058
  3. AMINOPHYLLINE. [Concomitant]
     Active Substance: AMINOPHYLLINE
     Route: 065
     Dates: start: 1994
  4. XOLAIR [Suspect]
     Active Substance: OMALIZUMAB
     Route: 058
     Dates: start: 20130427
  5. XOLAIR [Suspect]
     Active Substance: OMALIZUMAB
     Route: 058
     Dates: start: 20130701
  6. XOLAIR [Suspect]
     Active Substance: OMALIZUMAB
     Indication: ASTHMA
     Route: 058
     Dates: start: 20130227
  7. PREDNISONE. [Concomitant]
     Active Substance: PREDNISONE
     Route: 065
     Dates: start: 1994
  8. XOLAIR [Suspect]
     Active Substance: OMALIZUMAB
     Route: 058
     Dates: start: 20130601
  9. AEROLIN [Concomitant]
     Active Substance: ALBUTEROL
     Route: 065
     Dates: start: 1994

REACTIONS (12)
  - Dyspnoea [Unknown]
  - Blood pressure increased [Recovering/Resolving]
  - Hypertension [Recovered/Resolved]
  - Malaise [Unknown]
  - Migraine [Unknown]
  - Asthma [Unknown]
  - Influenza [Unknown]
  - Pyrexia [Unknown]
  - Speech disorder [Unknown]
  - Bone pain [Unknown]
  - Chest pain [Unknown]
  - Abdominal pain [Recovered/Resolved]

NARRATIVE: CASE EVENT DATE: 20130427
